FAERS Safety Report 15904412 (Version 1)
Quarter: 2019Q1

REPORT INFORMATION
  Report Type: Spontaneous
  Country: ES (occurrence: ES)
  Receive Date: 20190204
  Receipt Date: 20190204
  Transmission Date: 20190417
  Serious: Yes (Life-Threatening, Hospitalization, Other)
  Sender: FDA-Public Use
  Company Number: ES-ROCHE-464667

PATIENT
  Age: 31 Year
  Sex: Female
  Weight: 98 kg

DRUGS (4)
  1. TRUVADA [Interacting]
     Active Substance: EMTRICITABINE\TENOFOVIR DISOPROXIL FUMARATE
     Indication: HIV INFECTION
     Dosage: DOSE FORM REPORTED AS 200/245 MG/COATED TABS.
     Route: 048
     Dates: start: 200601, end: 20060516
  2. HERCEPTIN [Suspect]
     Active Substance: TRASTUZUMAB
     Indication: BREAST CANCER FEMALE
     Dosage: DOSE FORM REPORTED AS VIAL.
     Route: 042
     Dates: start: 20060509, end: 20060509
  3. DOCETAXEL. [Interacting]
     Active Substance: DOCETAXEL
     Indication: BREAST CANCER FEMALE
     Route: 042
     Dates: start: 20060510, end: 20060510
  4. KALETRA [Interacting]
     Active Substance: LOPINAVIR\RITONAVIR
     Indication: HIV INFECTION
     Route: 048
     Dates: start: 200601, end: 20060516

REACTIONS (4)
  - Breast cancer [Unknown]
  - Mucosal inflammation [Recovered/Resolved]
  - Drug interaction [Unknown]
  - Agranulocytosis [Recovered/Resolved]

NARRATIVE: CASE EVENT DATE: 20060515
